FAERS Safety Report 6257969-2 (Version None)
Quarter: 2009Q3

REPORT INFORMATION
  Report Type: 
  Country: None (occurrence: None)
  Receive Date: 20090707
  Receipt Date: 20090702
  Transmission Date: 20100115
  Serious: No
  Sender: FDA-Public Use
  Company Number: DE-EISAI INC.-E2090-00770-SPO-DE

PATIENT
  Age: 22 Year
  Sex: Male

DRUGS (4)
  1. ZONEGRAN [Suspect]
     Indication: COMPLEX PARTIAL SEIZURES
     Route: 048
     Dates: start: 20090407, end: 20090420
  2. ZONEGRAN [Suspect]
     Route: 048
     Dates: start: 20090421, end: 20090504
  3. ZONEGRAN [Suspect]
     Route: 048
     Dates: start: 20090505, end: 20090511
  4. KEPPRA [Concomitant]
     Indication: COMPLEX PARTIAL SEIZURES
     Route: 048
     Dates: start: 20080501

REACTIONS (4)
  - ANXIETY [None]
  - GAIT DISTURBANCE [None]
  - ILLUSION [None]
  - VERTIGO [None]
